FAERS Safety Report 13769457 (Version 1)
Quarter: 2017Q3

REPORT INFORMATION
  Report Type: Spontaneous
  Country: US (occurrence: US)
  Receive Date: 20170719
  Receipt Date: 20170719
  Transmission Date: 20171127
  Serious: No
  Sender: FDA-Public Use
  Company Number: US-CELGENEUS-USA-20170703053

PATIENT
  Age: 55 Year
  Sex: Female

DRUGS (3)
  1. OTEZLA [Suspect]
     Active Substance: APREMILAST
     Indication: PSORIASIS
     Dosage: 10 MILLIGRAM
     Route: 048
     Dates: start: 20170709, end: 20170709
  2. OTEZLA [Suspect]
     Active Substance: APREMILAST
     Dosage: 60 MILLIGRAM
     Route: 048
     Dates: start: 201707
  3. OTEZLA [Suspect]
     Active Substance: APREMILAST
     Dosage: 20 MILLIGRAM
     Route: 048
     Dates: start: 20170710, end: 20170710

REACTIONS (3)
  - Vomiting [Recovering/Resolving]
  - Diarrhoea [Recovering/Resolving]
  - Chills [Not Recovered/Not Resolved]

NARRATIVE: CASE EVENT DATE: 20170711
